FAERS Safety Report 8530286-3 (Version None)
Quarter: 2012Q3

REPORT INFORMATION
  Report Type: 
  Country: None (occurrence: None)
  Receive Date: 20120723
  Receipt Date: 20120713
  Transmission Date: 20120928
  Serious: Yes (Other)
  Sender: FDA-Public Use
  Company Number: US-ABBOTT-12P-163-0948544-00

PATIENT
  Sex: Female

DRUGS (2)
  1. HUMIRA [Suspect]
     Indication: PSORIASIS
     Dates: start: 20120503
  2. METFORMIN HYDROCHLORIDE [Concomitant]
     Indication: DIABETES MELLITUS
     Route: 048

REACTIONS (5)
  - OEDEMA PERIPHERAL [None]
  - JOINT SWELLING [None]
  - ARTHRALGIA [None]
  - BLOOD GLUCOSE INCREASED [None]
  - SKIN EXFOLIATION [None]
